FAERS Safety Report 17585105 (Version 1)
Quarter: 2020Q1

REPORT INFORMATION
  Report Type: Spontaneous
  Country: IT (occurrence: IT)
  Receive Date: 20200326
  Receipt Date: 20200326
  Transmission Date: 20200409
  Serious: Yes (Hospitalization)
  Sender: FDA-Public Use
  Company Number: IT-MYLANLABS-2020M1031558

PATIENT
  Age: 25 Year
  Sex: Male
  Weight: 76 kg

DRUGS (1)
  1. ESCITALOPRAM [Suspect]
     Active Substance: ESCITALOPRAM OXALATE
     Indication: DEPRESSION
     Dosage: 10 MILLIGRAM, QD
     Route: 048
     Dates: start: 20150101, end: 20180201

REACTIONS (10)
  - Memory impairment [Recovering/Resolving]
  - Visual impairment [Recovering/Resolving]
  - Hypoacusis [Recovering/Resolving]
  - Vitreous floaters [Recovering/Resolving]
  - Gastrointestinal disorder [Recovering/Resolving]
  - Libido decreased [Recovering/Resolving]
  - Tinnitus [Recovering/Resolving]
  - Abdominal pain [Recovering/Resolving]
  - Pyrexia [Recovering/Resolving]
  - Arthralgia [Recovering/Resolving]

NARRATIVE: CASE EVENT DATE: 20180301
